FAERS Safety Report 5914110-0 (Version None)
Quarter: 2008Q4

REPORT INFORMATION
  Report Type: 
  Country: None (occurrence: None)
  Receive Date: 20081009
  Receipt Date: 20080929
  Transmission Date: 20090506
  Serious: Yes (Other)
  Sender: FDA-Public Use
  Company Number: LB-SANOFI-SYNTHELABO-A01200811953

PATIENT
  Age: 56 Year
  Sex: Female
  Weight: 53 kg

DRUGS (6)
  1. EPREX [Concomitant]
     Indication: ANAEMIA
     Route: 058
  2. LEUCOVORIN CALCIUM [Concomitant]
     Indication: COLON CANCER
     Route: 041
  3. FLUOROURACIL [Concomitant]
     Indication: COLON CANCER
     Route: 040
  4. FLUOROURACIL [Concomitant]
     Route: 041
  5. ERBITUX [Suspect]
     Route: 041
  6. ELOXATIN [Suspect]
     Indication: COLON CANCER
     Route: 041
     Dates: start: 20080925, end: 20080925

REACTIONS (8)
  - ACTIVATED PARTIAL THROMBOPLASTIN TIME PROLONGED [None]
  - BLOOD BILIRUBIN UNCONJUGATED INCREASED [None]
  - BLOOD FIBRINOGEN DECREASED [None]
  - BLOOD LACTATE DEHYDROGENASE INCREASED [None]
  - DISSEMINATED INTRAVASCULAR COAGULATION [None]
  - HAEMOLYTIC ANAEMIA [None]
  - INTERNATIONAL NORMALISED RATIO INCREASED [None]
  - THROMBOCYTOPENIA [None]
